FAERS Safety Report 7125580-7 (Version None)
Quarter: 2010Q4

REPORT INFORMATION
  Report Type: 
  Country: None (occurrence: None)
  Receive Date: 20101112
  Receipt Date: 20101028
  Transmission Date: 20110411
  Serious: Yes (Hospitalization)
  Sender: FDA-Public Use
  Company Number: 1000017192

PATIENT
  Age: 71 Year
  Sex: Female

DRUGS (9)
  1. ESCITALOPRAM [Suspect]
     Indication: DEPRESSION
     Dosage: (15 MG),ORAL
     Route: 048
     Dates: start: 20091201, end: 20100615
  2. SINTROM (ACENOCOUMAROL) (TABLETS) [Suspect]
     Indication: PULMONARY EMBOLISM
     Dosage: ORAL
     Route: 048
     Dates: start: 20091201, end: 20100615
  3. ALENDRONIC ACID (ALENDRONIC ACID) (TABLETS) [Suspect]
     Indication: OSTEOPOROSIS
     Dosage: 10 MG (70 MG,1 IN 1 WK),ORAL
     Route: 048
     Dates: start: 20091201, end: 20100615
  4. DUROGESIC MATRIX (FENTANYL) (POULTICE OR PATCH) (FENTANYL) [Concomitant]
  5. LYRICA (PREGABALIN) (TABLETS) (PREGABALIN) [Concomitant]
  6. ORFIDAL (LORAZEPAM) (TABLETS) (LORAZEPAM) [Concomitant]
  7. MOTILIUM (DOMPERIDONE) (TABLETS) (DOMPERIDONE) [Concomitant]
  8. MOVICOL (NULYTELY) (NULYTELY) [Concomitant]
  9. ALMAX COMPRIMIDOS MASTICABLES (ALMAGATE) (CHEWABLE TABLET) (ALMAGATE) [Concomitant]

REACTIONS (3)
  - ASTHENIA [None]
  - CARDIAC FAILURE [None]
  - IRON DEFICIENCY ANAEMIA [None]
